FAERS Safety Report 7717257-1 (Version None)
Quarter: 2011Q3

REPORT INFORMATION
  Report Type: 
  Country: None (occurrence: None)
  Receive Date: 20110818
  Receipt Date: 20110712
  Transmission Date: 20111222
  Serious: No
  Sender: FDA-Public Use
  Company Number: 1000022119

PATIENT
  Age: 45 Year
  Sex: Female

DRUGS (7)
  1. VIIBRYD [Suspect]
     Indication: DEPRESSION
     Dosage: 10 MG, ORAL
     Route: 048
     Dates: start: 20110601, end: 20110601
  2. VIIBRYD [Suspect]
     Indication: ANXIETY
     Dosage: 10 MG, ORAL
     Route: 048
     Dates: start: 20110601, end: 20110601
  3. VIIBRYD [Suspect]
     Indication: DEPRESSION
     Dosage: 20 MG, ORAL, 10 MG, ORAL
     Route: 048
     Dates: start: 20110712
  4. VIIBRYD [Suspect]
     Indication: ANXIETY
     Dosage: 20 MG, ORAL, 10 MG, ORAL
     Route: 048
     Dates: start: 20110712
  5. VIIBRYD [Suspect]
     Indication: DEPRESSION
     Dosage: 20 MG, ORAL, 10 MG, ORAL
     Route: 048
     Dates: start: 20110701, end: 20110711
  6. VIIBRYD [Suspect]
     Indication: ANXIETY
     Dosage: 20 MG, ORAL, 10 MG, ORAL
     Route: 048
     Dates: start: 20110701, end: 20110711
  7. VITAMINS NOS (VITAMINS NOS) (VITAMINS NOS) [Concomitant]

REACTIONS (2)
  - AGITATION [None]
  - ANXIETY [None]
